FAERS Safety Report 13942342 (Version 4)
Quarter: 2018Q1

REPORT INFORMATION
  Report Type: Spontaneous
  Country: GB (occurrence: GB)
  Receive Date: 20170907
  Receipt Date: 20180119
  Transmission Date: 20180508
  Serious: Yes (Congenital Anomaly)
  Sender: FDA-Public Use
  Company Number: GB-ASTRAZENECA-2017SE31104

PATIENT
  Age: 14 Year
  Sex: Male

DRUGS (3)
  1. LOSEC [Suspect]
     Active Substance: OMEPRAZOLE
     Indication: OESOPHAGEAL DISORDER
     Route: 064
     Dates: end: 2013
  2. LOSEC [Suspect]
     Active Substance: OMEPRAZOLE
     Indication: OESOPHAGEAL DISORDER
     Dosage: GENERIC.
     Route: 064
  3. LOSEC [Suspect]
     Active Substance: OMEPRAZOLE
     Indication: OESOPHAGEAL DISORDER
     Route: 064
     Dates: end: 2013

REACTIONS (7)
  - Fibrous dysplasia of jaw [Unknown]
  - Ill-defined disorder [Unknown]
  - Dyspraxia [Unknown]
  - Post viral fatigue syndrome [Unknown]
  - Arthralgia [Unknown]
  - Fatigue [Unknown]
  - Neuropathy peripheral [Unknown]

NARRATIVE: CASE EVENT DATE: 2011
